FAERS Safety Report 4336774-8 (Version None)
Quarter: 2004Q2

REPORT INFORMATION
  Report Type: 
  Country: None (occurrence: None)
  Receive Date: 20040407
  Receipt Date: 20040330
  Transmission Date: 20050107
  Serious: Yes (Death)
  Sender: FDA-Public Use
  Company Number: US-JNJFOC-20040306766

PATIENT
  Age: 52 Year
  Sex: Male

DRUGS (2)
  1. DURAGESIC [Suspect]
     Indication: PAIN
     Dosage: 75 UG/HR, 1 IN 72 HOUR, TRANSDERMAL
     Route: 062
     Dates: end: 20040207
  2. ON SEVERAL OTHER MEDICATIONS (UNKNOWN) (ALL OTHER THERAPEUTIC PRODUCTS [Concomitant]

REACTIONS (6)
  - ALCOHOL USE [None]
  - DYSPNOEA [None]
  - FEELING ABNORMAL [None]
  - MEDICATION ERROR [None]
  - SOMNOLENCE [None]
  - TACHYCARDIA [None]
